FAERS Safety Report 5053185-0 (Version None)
Quarter: 2006Q3

REPORT INFORMATION
  Report Type: 
  Country: None (occurrence: None)
  Receive Date: 20060712
  Receipt Date: 20060621
  Transmission Date: 20061208
  Serious: Yes (Hospitalization, Other)
  Sender: FDA-Public Use
  Company Number: US200604002898

PATIENT
  Age: 76 Year
  Sex: Female
  Weight: 72.6 kg

DRUGS (2)
  1. FORTEO [Suspect]
     Indication: OSTEOPOROSIS
     Dosage: 20 UG, DAILY (1/D), UNK
     Dates: start: 20040922
  2. FORTEO [Concomitant]
     Indication: OSTEOPOROSIS
     Dosage: 20 UG, DAILY (1/D), UNK
     Dates: start: 20040922

REACTIONS (2)
  - DEVICE FAILURE [None]
  - HIP FRACTURE [None]
